FAERS Safety Report 6907862-4 (Version None)
Quarter: 2010Q3

REPORT INFORMATION
  Report Type: 
  Country: None (occurrence: None)
  Receive Date: 20100712
  Receipt Date: 20090915
  Transmission Date: 20110219
  Serious: No
  Sender: FDA-Public Use
  Company Number: US-001086

PATIENT
  Sex: Female
  Weight: 44 kg

DRUGS (3)
  1. KUVAN [Suspect]
     Indication: PHENYLKETONURIA
     Dosage: (20 MG/KG, FREQUENCY UNKNOWN ORAL), (20 MG/KG, FREQUENCY UNKNOWN ORAL), (DOSE AND FREQUENCY: UNKNOWN
     Route: 048
     Dates: start: 20070101
  2. KUVAN [Suspect]
     Indication: PHENYLKETONURIA
     Dosage: (20 MG/KG, FREQUENCY UNKNOWN ORAL), (20 MG/KG, FREQUENCY UNKNOWN ORAL), (DOSE AND FREQUENCY: UNKNOWN
     Route: 048
     Dates: start: 20080110
  3. KUVAN [Suspect]
     Indication: PHENYLKETONURIA
     Dosage: (20 MG/KG, FREQUENCY UNKNOWN ORAL), (20 MG/KG, FREQUENCY UNKNOWN ORAL), (DOSE AND FREQUENCY: UNKNOWN
     Route: 048
     Dates: start: 20090601

REACTIONS (3)
  - DIZZINESS [None]
  - FATIGUE [None]
  - LETHARGY [None]
